FAERS Safety Report 21076425 (Version 1)
Quarter: 2022Q3

REPORT INFORMATION
  Report Type: Spontaneous
  Country: US (occurrence: None)
  Receive Date: 20220713
  Receipt Date: 20220713
  Transmission Date: 20221027
  Serious: Yes (Other)
  Sender: FDA-Public Use
  Company Number: None

PATIENT
  Age: 56 Year
  Sex: Female

DRUGS (1)
  1. STELARA [Suspect]
     Active Substance: USTEKINUMAB
     Indication: Crohn^s disease
     Dosage: OTHER FREQUENCY : EVERY 8 WEEKS;?
     Route: 058
     Dates: start: 20211008, end: 20220408

REACTIONS (5)
  - Proteinuria [None]
  - Haematuria [None]
  - Hypoalbuminaemia [None]
  - Chronic kidney disease [None]
  - IgA nephropathy [None]

NARRATIVE: CASE EVENT DATE: 20220512
